FAERS Safety Report 12245679 (Version 1)
Quarter: 2016Q2

REPORT INFORMATION
  Report Type: Spontaneous
  Country: US (occurrence: None)
  Receive Date: 20160406
  Receipt Date: 20160406
  Transmission Date: 20160815
  Serious: Yes (Hospitalization)
  Sender: FDA-Public Use
  Company Number: None

PATIENT
  Age: 66 Year
  Sex: Male

DRUGS (14)
  1. XGEVA [Concomitant]
     Active Substance: DENOSUMAB
  2. SMZ/TMP [Concomitant]
     Active Substance: SULFAMETHOXAZOLE\TRIMETHOPRIM
  3. METFORMIN [Concomitant]
     Active Substance: METFORMIN HYDROCHLORIDE
  4. GABAPENTIN. [Concomitant]
     Active Substance: GABAPENTIN
  5. ONDANSETYRON [Concomitant]
  6. FENTANYL. [Concomitant]
     Active Substance: FENTANYL
  7. PREDNISONE. [Concomitant]
     Active Substance: PREDNISONE
  8. ALPRAZOLAM. [Concomitant]
     Active Substance: ALPRAZOLAM
  9. ZYTIGA [Suspect]
     Active Substance: ABIRATERONE ACETATE
     Indication: PROSTATE CANCER
     Dosage: 4 TABS DAILY PO
     Route: 048
     Dates: start: 20160311, end: 201603
  10. WARFARIN [Concomitant]
     Active Substance: WARFARIN
  11. LANTUS [Concomitant]
     Active Substance: INSULIN GLARGINE
  12. DOCQULATE [Concomitant]
  13. OXYCODONE [Concomitant]
     Active Substance: OXYCODONE
  14. BICALUTAMIDE. [Concomitant]
     Active Substance: BICALUTAMIDE

REACTIONS (1)
  - Dyspnoea [None]

NARRATIVE: CASE EVENT DATE: 201603
